FAERS Safety Report 10379592 (Version 1)
Quarter: 2014Q3

REPORT INFORMATION
  Report Type: Spontaneous
  Country: DE (occurrence: DE)
  Receive Date: 20140812
  Receipt Date: 20140812
  Transmission Date: 20150326
  Serious: Yes (Disabling)
  Sender: FDA-Public Use
  Company Number: PHHY2014DE099474

PATIENT
  Sex: Male
  Weight: 55 kg

DRUGS (1)
  1. GILENYA [Suspect]
     Active Substance: FINGOLIMOD HYDROCHLORIDE
     Indication: MULTIPLE SCLEROSIS
     Dosage: 0.5 MG, QD
     Route: 048
     Dates: start: 201312

REACTIONS (5)
  - Pruritus [Not Recovered/Not Resolved]
  - Scab [Not Recovered/Not Resolved]
  - Erythema [Not Recovered/Not Resolved]
  - Blister [Not Recovered/Not Resolved]
  - Purulence [Not Recovered/Not Resolved]

NARRATIVE: CASE EVENT DATE: 201406
